FAERS Safety Report 12720351 (Version 2)
Quarter: 2017Q1

REPORT INFORMATION
  Report Type: Spontaneous
  Country: IL (occurrence: IL)
  Receive Date: 20160907
  Receipt Date: 20170323
  Transmission Date: 20170428
  Serious: Yes (Hospitalization, Other)
  Sender: FDA-Public Use
  Company Number: IL-NOVOPROD-508025

PATIENT
  Age: 6 Year
  Sex: Female

DRUGS (3)
  1. ACTRAPID [Suspect]
     Active Substance: INSULIN HUMAN
     Indication: TYPE 1 DIABETES MELLITUS
     Dosage: 4-6.5 U TWICE A DAY
     Route: 058
  2. NOVORAPID [Suspect]
     Active Substance: INSULIN ASPART
     Indication: TYPE 1 DIABETES MELLITUS
     Dosage: 2.75-4 U AT THE EVENING
     Route: 058
  3. TREGLUDEC [Suspect]
     Active Substance: INSULIN DEGLUDEC
     Indication: TYPE 1 DIABETES MELLITUS
     Dosage: 13 U, QD (IN THE MORNING)
     Route: 058

REACTIONS (2)
  - Langerhans^ cell histiocytosis [Unknown]
  - Neutropenia [Recovered/Resolved]
